FAERS Safety Report 9433148 (Version 1)
Quarter: 2013Q3

REPORT INFORMATION
  Report Type: Spontaneous
  Country: US (occurrence: US)
  Receive Date: 20130731
  Receipt Date: 20130731
  Transmission Date: 20140515
  Serious: Yes (Hospitalization)
  Sender: FDA-Public Use
  Company Number: US-GLAXOSMITHKLINE-A1035039A

PATIENT
  Age: 71 Year
  Sex: Male

DRUGS (13)
  1. AVODART [Suspect]
     Indication: BENIGN PROSTATIC HYPERPLASIA
     Dosage: 1CAP PER DAY
     Route: 048
  2. FLOMAX [Suspect]
     Indication: BENIGN PROSTATIC HYPERPLASIA
     Route: 065
  3. CELLCEPT [Concomitant]
  4. PROGRAF [Concomitant]
  5. LIPITOR [Concomitant]
  6. TOPROL [Concomitant]
  7. ALTACE [Concomitant]
  8. MULTIVITAMIN [Concomitant]
  9. ASPIRIN [Concomitant]
  10. HCTZ [Concomitant]
  11. PREDNISONE [Concomitant]
  12. INSULIN [Concomitant]
  13. PRANDIN [Concomitant]

REACTIONS (5)
  - Feeling cold [Not Recovered/Not Resolved]
  - Asthenia [Not Recovered/Not Resolved]
  - Drug ineffective [Not Recovered/Not Resolved]
  - Bladder pain [Recovered/Resolved]
  - Dysuria [Recovered/Resolved]
